FAERS Safety Report 6914429-0 (Version None)
Quarter: 2010Q3

REPORT INFORMATION
  Report Type: 
  Country: None (occurrence: None)
  Receive Date: 20100809
  Receipt Date: 20100728
  Transmission Date: 20110219
  Serious: Yes (Hospitalization)
  Sender: FDA-Public Use
  Company Number: US-PFIZER INC-2010053770

PATIENT
  Sex: Female

DRUGS (4)
  1. ADRIAMYCIN PFS [Suspect]
     Indication: BREAST CANCER
     Dosage: 115 MG, UNK
     Route: 042
     Dates: start: 20091109, end: 20100119
  2. IXABEPILONE [Suspect]
     Indication: BREAST CANCER
     Dosage: 77 MG, UNK
     Route: 042
     Dates: start: 20100216
  3. CYTOXAN [Suspect]
     Indication: BREAST CANCER
     Dosage: 1152 MG, UNK
     Route: 042
     Dates: start: 20091109, end: 20100119
  4. ZOFRAN [Concomitant]
     Dosage: UNK
     Dates: start: 20100412

REACTIONS (1)
  - PANCREATITIS ACUTE [None]
